FAERS Safety Report 18169058 (Version 2)
Quarter: 2020Q3

REPORT INFORMATION
  Report Type: Spontaneous
  Country: US (occurrence: US)
  Receive Date: 20200819
  Receipt Date: 20200831
  Transmission Date: 20201103
  Serious: No
  Sender: FDA-Public Use
  Company Number: US-PFIZER INC-2020273920

PATIENT
  Age: 66 Year
  Sex: Female
  Weight: 71.21 kg

DRUGS (2)
  1. IBRANCE [Suspect]
     Active Substance: PALBOCICLIB
     Indication: BREAST CANCER METASTATIC
     Dosage: 100 MG, CYCLIC (3 WEEKS ON AND 1 WEEK OFF)
     Route: 048
     Dates: start: 201907
  2. IBRANCE [Suspect]
     Active Substance: PALBOCICLIB
     Dosage: 100 MG, CYCLIC (2 WEEKS ON AND 1 WEEK OFF)
     Route: 048

REACTIONS (5)
  - Cold sweat [Unknown]
  - Weight decreased [Unknown]
  - Hyperhidrosis [Unknown]
  - Sinus disorder [Unknown]
  - Chills [Unknown]
